FAERS Safety Report 21588740 (Version 2)
Quarter: 2023Q1

REPORT INFORMATION
  Report Type: Report from Study
  Country: CO (occurrence: CO)
  Receive Date: 20221114
  Receipt Date: 20230215
  Transmission Date: 20230417
  Serious: Yes (Hospitalization, Other)
  Sender: FDA-Public Use
  Company Number: CO-UCBSA-2022064862

PATIENT
  Age: 68 Year
  Sex: Female

DRUGS (1)
  1. CERTOLIZUMAB PEGOL [Suspect]
     Active Substance: CERTOLIZUMAB PEGOL
     Indication: Rheumatoid arthritis
     Dosage: 400 MILLIGRAM, EV 4 WEEKS
     Route: 058
     Dates: start: 20220703, end: 20221003

REACTIONS (5)
  - Lung disorder [Recovering/Resolving]
  - Foot operation [Recovered/Resolved]
  - Bronchoscopy [Recovered/Resolved]
  - Therapy interrupted [Unknown]
  - Foot deformity [Recovered/Resolved]

NARRATIVE: CASE EVENT DATE: 20221022
